FAERS Safety Report 4537099-8 (Version None)
Quarter: 2004Q4

REPORT INFORMATION
  Report Type: 
  Country: None (occurrence: None)
  Receive Date: 20041223
  Receipt Date: 20041217
  Transmission Date: 20050328
  Serious: Yes (Hospitalization, Other)
  Sender: FDA-Public Use
  Company Number: 2004-10-1284

PATIENT
  Age: 58 Year
  Sex: Male

DRUGS (1)
  1. BECLOMETHASONE DIPROPIONATE [Suspect]
     Indication: ASTHMA
     Dosage: 200MCG TWICE PER DAY
     Route: 055

REACTIONS (6)
  - DYSPNOEA [None]
  - HAEMOPTYSIS [None]
  - INTRACARDIAC THROMBUS [None]
  - PULMONARY EMBOLISM [None]
  - SILENT MYOCARDIAL INFARCTION [None]
  - SPLENIC INFARCTION [None]
